FAERS Safety Report 10260630 (Version 1)
Quarter: 2014Q2

REPORT INFORMATION
  Report Type: Report from Study
  Country: US (occurrence: US)
  Receive Date: 20140626
  Receipt Date: 20140626
  Transmission Date: 20141212
  Serious: Yes (Other)
  Sender: FDA-Public Use
  Company Number: US-ABBVIE-14P-163-1251615-00

PATIENT
  Age: 55 Year
  Sex: Male

DRUGS (5)
  1. LUPRON DEPOT [Suspect]
     Indication: PROSTATE CANCER
     Dates: start: 20110601, end: 201108
  2. LUPRON DEPOT [Suspect]
     Dates: start: 20130207
  3. UNKNOWN PILLS [Suspect]
     Indication: PRODUCT USED FOR UNKNOWN INDICATION
  4. SEROQUEL [Concomitant]
     Indication: BIPOLAR DISORDER
  5. CASODEX [Concomitant]
     Indication: PROSTATE CANCER

REACTIONS (4)
  - Suicide attempt [Recovered/Resolved]
  - Depression [Unknown]
  - Overdose [Unknown]
  - Intentional overdose [None]
